FAERS Safety Report 8312591-9 (Version None)
Quarter: 2012Q2

REPORT INFORMATION
  Report Type: 
  Country: None (occurrence: None)
  Receive Date: 20120424
  Receipt Date: 20120415
  Transmission Date: 20120825
  Serious: Yes (Other)
  Sender: FDA-Public Use
  Company Number: 2012SP008504

PATIENT
  Sex: Female

DRUGS (5)
  1. RIBAVIRIN [Suspect]
     Indication: HEPATITIS C
     Dates: start: 20111013, end: 20120405
  2. PEG-INTRON [Suspect]
     Indication: HEPATITIS C
     Dates: start: 20010101, end: 20010301
  3. PEG-INTRON [Suspect]
     Indication: HEPATITIS C
     Dates: start: 20111013, end: 20120405
  4. INTRON A [Suspect]
     Indication: HEPATITIS C
     Dates: start: 20000101, end: 20000601
  5. TELAPREVIR [Suspect]
     Indication: HEPATITIS C
     Dates: start: 20111013, end: 20120405

REACTIONS (22)
  - DEPRESSION [None]
  - DECREASED APPETITE [None]
  - DYSPHONIA [None]
  - INSOMNIA [None]
  - AMNESIA [None]
  - PRURITUS [None]
  - DRY SKIN [None]
  - SYNCOPE [None]
  - LOSS OF CONSCIOUSNESS [None]
  - NAUSEA [None]
  - MUSCULOSKELETAL STIFFNESS [None]
  - ALOPECIA [None]
  - SKIN EXFOLIATION [None]
  - DIZZINESS [None]
  - MEMORY IMPAIRMENT [None]
  - SKIN DISCOLOURATION [None]
  - RASH [None]
  - TONGUE DISORDER [None]
  - WEIGHT DECREASED [None]
  - MENTAL DISORDER [None]
  - PSYCHOMOTOR HYPERACTIVITY [None]
  - MUSCLE ATROPHY [None]
